FAERS Safety Report 9397591 (Version 1)
Quarter: 2013Q3

REPORT INFORMATION
  Report Type: Spontaneous
  Country: GB (occurrence: GB)
  Receive Date: 20130712
  Receipt Date: 20130712
  Transmission Date: 20140515
  Serious: Yes (Death)
  Sender: FDA-Public Use
  Company Number: GB-PFIZER INC-2013201235

PATIENT
  Age: 55 Year
  Sex: Female

DRUGS (4)
  1. CYCLOPHOSPHAMIDE [Suspect]
     Indication: CHRONIC LYMPHOCYTIC LEUKAEMIA
     Dosage: UNK
     Dates: start: 2009
  2. FLUDARABINE PHOSPHATE [Suspect]
     Indication: CHRONIC LYMPHOCYTIC LEUKAEMIA
     Dosage: UNK
     Dates: start: 2009
  3. MABTHERA [Suspect]
     Indication: CHRONIC LYMPHOCYTIC LEUKAEMIA
     Dosage: 375 MG/M2, CYCLIC (FOR THE FIRST CYCLE)
     Dates: start: 2009
  4. MABTHERA [Suspect]
     Dosage: 500 MG/M2, CYCLIC (FOR SUBSEQUENT CYCLES)

REACTIONS (2)
  - Second primary malignancy [Fatal]
  - Myelodysplastic syndrome [Fatal]
